FAERS Safety Report 23055967 (Version 1)
Quarter: 2023Q4

REPORT INFORMATION
  Report Type: Spontaneous
  Country: US (occurrence: US)
  Receive Date: 20231011
  Receipt Date: 20231011
  Transmission Date: 20240110
  Serious: No
  Sender: FDA-Public Use
  Company Number: US-AMGEN-USASP2023176727

PATIENT

DRUGS (1)
  1. REPATHA [Suspect]
     Active Substance: EVOLOCUMAB
     Indication: Low density lipoprotein increased
     Dosage: UNK
     Route: 065

REACTIONS (11)
  - Hyperhidrosis [Unknown]
  - Chills [Unknown]
  - Muscular weakness [Unknown]
  - Pain in extremity [Unknown]
  - Arthralgia [Unknown]
  - Groin pain [Unknown]
  - Paranasal sinus hyposecretion [Unknown]
  - Visual impairment [Unknown]
  - Back pain [Unknown]
  - Fatigue [Unknown]
  - Pruritus [Unknown]
